FAERS Safety Report 4518830-4 (Version None)
Quarter: 2004Q4

REPORT INFORMATION
  Report Type: 
  Country: None (occurrence: None)
  Receive Date: 20041206
  Receipt Date: 20041124
  Transmission Date: 20050328
  Serious: Yes (Hospitalization, Other)
  Sender: FDA-Public Use
  Company Number: US-JNJFOC-20041106370

PATIENT
  Sex: Male
  Weight: 71.22 kg

DRUGS (9)
  1. REMICADE [Suspect]
     Indication: CROHN'S DISEASE
     Route: 042
  2. DIPENTUM [Concomitant]
     Indication: CROHN'S DISEASE
  3. ASPIRIN [Concomitant]
  4. ZOCOR [Concomitant]
  5. ACIPHEX [Concomitant]
  6. FLOMAX [Concomitant]
  7. FOLIC ACID [Concomitant]
  8. GLUCOVANCE [Concomitant]
  9. GLUCOVANCE [Concomitant]

REACTIONS (2)
  - CROHN'S DISEASE [None]
  - NON-HODGKIN'S LYMPHOMA [None]
